FAERS Safety Report 6020090-2 (Version None)
Quarter: 2008Q4

REPORT INFORMATION
  Report Type: 
  Country: None (occurrence: None)
  Receive Date: 20081226
  Receipt Date: 20081216
  Transmission Date: 20090506
  Serious: Yes (Hospitalization, Other)
  Sender: FDA-Public Use
  Company Number: IE-BAYER-200813545BNE

PATIENT
  Age: 71 Year
  Sex: Male

DRUGS (9)
  1. AVELOX [Suspect]
     Indication: PNEUMONIA
     Dates: start: 20080304, end: 20080309
  2. EMCOR [Suspect]
     Indication: HYPERTENSION
     Dates: end: 20080309
  3. KLACID LA [Suspect]
     Indication: PNEUMONIA
     Dates: start: 20080225, end: 20080304
  4. COVERSYL ARGININE [Concomitant]
     Indication: DRUG USE FOR UNKNOWN INDICATION
  5. LIPITOR [Concomitant]
     Indication: DRUG USE FOR UNKNOWN INDICATION
  6. ALLOPURINOL [Concomitant]
     Indication: DRUG USE FOR UNKNOWN INDICATION
  7. SERETIDE [Concomitant]
     Indication: DRUG USE FOR UNKNOWN INDICATION
  8. ISTIN [Concomitant]
     Indication: UNEVALUABLE EVENT
  9. WARFANT [Concomitant]
     Indication: DRUG USE FOR UNKNOWN INDICATION

REACTIONS (3)
  - BRADYCARDIA [None]
  - BUNDLE BRANCH BLOCK RIGHT [None]
  - ELECTROCARDIOGRAM QT PROLONGED [None]
